FAERS Safety Report 8583788 (Version 3)
Quarter: 2012Q4

REPORT INFORMATION
  Report Type: 
  Country: US (occurrence: US)
  Receive Date: 20120529
  Receipt Date: 20120917
  Transmission Date: 20130627
  Serious: Yes (Other)
  Sender: FDA-Public Use
  Company Number: US-TEVA-339646USA

PATIENT
  Age: 18 Year
  Sex: Female

DRUGS (1)
  1. CLARAVIS [Suspect]
     Dosage: 60 Milligram Daily;
     Route: 048
     Dates: start: 20111101, end: 201205

REACTIONS (1)
  - Unintended pregnancy [Recovered/Resolved]
